FAERS Safety Report 23151631 (Version 3)
Quarter: 2024Q2

REPORT INFORMATION
  Report Type: Spontaneous
  Country: JP (occurrence: JP)
  Receive Date: 20231107
  Receipt Date: 20240531
  Transmission Date: 20240716
  Serious: Yes (Hospitalization, Other)
  Sender: FDA-Public Use
  Company Number: JP-BoehringerIngelheim-2023-BI-270167

PATIENT
  Age: 72 Year
  Sex: Female
  Weight: 52 kg

DRUGS (3)
  1. JARDIANCE [Suspect]
     Active Substance: EMPAGLIFLOZIN
     Indication: Chronic kidney disease
     Route: 065
  2. KREMEZIN [Suspect]
     Active Substance: ACTIVATED CHARCOAL
     Indication: Product used for unknown indication
     Route: 065
  3. ENALAPRIL [Concomitant]
     Active Substance: ENALAPRIL
     Indication: Product used for unknown indication
     Route: 065

REACTIONS (4)
  - Sepsis [Recovering/Resolving]
  - Enterococcal infection [Unknown]
  - Escherichia infection [Unknown]
  - Coma [Recovering/Resolving]
